FAERS Safety Report 17533407 (Version 1)
Quarter: 2020Q1

REPORT INFORMATION
  Report Type: Spontaneous
  Country: GB (occurrence: GB)
  Receive Date: 20200312
  Receipt Date: 20200312
  Transmission Date: 20200409
  Serious: Yes (Hospitalization)
  Sender: FDA-Public Use
  Company Number: GB-PFIZER INC-2020103155

PATIENT
  Age: 62 Year
  Sex: Male

DRUGS (5)
  1. LISINOPRIL. [Concomitant]
     Active Substance: LISINOPRIL
     Dosage: UNK
  2. ASPIRIN [ACETYLSALICYLIC ACID] [Suspect]
     Active Substance: ASPIRIN
     Dosage: 75 MG, 1X/DAY, IN THE MORNING
     Route: 048
  3. ATORVASTATIN [Concomitant]
     Active Substance: ATORVASTATIN
     Dosage: UNK
  4. IBUPROFEN. [Suspect]
     Active Substance: IBUPROFEN
     Indication: ANALGESIC THERAPY
     Dosage: 400 MG, SINGLE, (400MG THREE TIMES DAILY WHEN REQUIRED PRESCRIBED- TOOK 1 DOSE)
     Route: 048
  5. BEECHAMS POWDERS [ACETYLSALICYLIC ACID;CAFFEINE] [Suspect]
     Active Substance: ASPIRIN\CAFFEINE
     Indication: COUGH
     Dosage: UNK, TOOK 3-4 SACHETS FOR A COUPLE OF DAYS
     Route: 048

REACTIONS (1)
  - Gastrointestinal haemorrhage [Unknown]
